FAERS Safety Report 7427365-0 (Version None)
Quarter: 2011Q2

REPORT INFORMATION
  Report Type: 
  Country: None (occurrence: None)
  Receive Date: 20110420
  Receipt Date: 20110324
  Transmission Date: 20111010
  Serious: No
  Sender: FDA-Public Use
  Company Number: US-B.I. PHARMACEUTICALS,INC./RIDGEFIELD-2011-BP-09209BP

PATIENT
  Sex: Female

DRUGS (8)
  1. CRYSTALLINE VIT B12 INJ [Concomitant]
     Route: 042
  2. PRADAXA [Suspect]
     Indication: ATRIAL FIBRILLATION
     Dosage: 300 MG
     Route: 048
     Dates: start: 20110101
  3. LISINOPRIL [Concomitant]
     Indication: HYPERTENSION
  4. CALCIUM [Concomitant]
  5. PROBIOTICS [Concomitant]
  6. ZETIA [Concomitant]
     Indication: BLOOD CHOLESTEROL INCREASED
  7. METFORMIN [Concomitant]
     Indication: TYPE 2 DIABETES MELLITUS
  8. SOTALOL HCL [Suspect]
     Indication: ATRIAL FIBRILLATION

REACTIONS (7)
  - CHEST DISCOMFORT [None]
  - DIZZINESS [None]
  - DYSPNOEA [None]
  - NAUSEA [None]
  - SENSATION OF FOREIGN BODY [None]
  - GAIT DISTURBANCE [None]
  - HEADACHE [None]
